FAERS Safety Report 16162457 (Version 1)
Quarter: 2019Q2

REPORT INFORMATION
  Report Type: Spontaneous
  Country: US (occurrence: US)
  Receive Date: 20190405
  Receipt Date: 20190405
  Transmission Date: 20190711
  Serious: No
  Sender: FDA-Public Use
  Company Number: US-BAYER-2019-067874

PATIENT
  Age: 68 Year
  Sex: Female

DRUGS (2)
  1. RESTORALAX [Suspect]
     Active Substance: POLYETHYLENE GLYCOL 3350
     Indication: COLONOSCOPY
     Dosage: UNK
     Route: 065
     Dates: start: 20190403
  2. MIRALAX [Suspect]
     Active Substance: POLYETHYLENE GLYCOL 3350
     Indication: COLONOSCOPY
     Dosage: 238 G
     Route: 065
     Dates: start: 20190403

REACTIONS (3)
  - Product use in unapproved indication [Unknown]
  - Expired product administered [Unknown]
  - Off label use [Unknown]

NARRATIVE: CASE EVENT DATE: 2019
